FAERS Safety Report 6067768-2 (Version None)
Quarter: 2009Q1

REPORT INFORMATION
  Report Type: 
  Country: None (occurrence: None)
  Receive Date: 20090203
  Receipt Date: 20090123
  Transmission Date: 20090719
  Serious: No
  Sender: FDA-Public Use
  Company Number: US025350

PATIENT
  Age: 43 Year
  Sex: Male

DRUGS (2)
  1. FENTORA [Suspect]
     Indication: PAIN
     Dosage: 400 UG BID BUCCAL
     Route: 002
     Dates: start: 20080101
  2. OXYCONTIN [Concomitant]

REACTIONS (1)
  - TOOTH DISORDER [None]
